FAERS Safety Report 7079378-9 (Version None)
Quarter: 2010Q4

REPORT INFORMATION
  Report Type: 
  Country: None (occurrence: None)
  Receive Date: 20101102
  Receipt Date: 20101025
  Transmission Date: 20110411
  Serious: Yes (Other)
  Sender: FDA-Public Use
  Company Number: GB-TEVA-232661ISR

PATIENT
  Sex: Male
  Weight: 78.4 kg

DRUGS (12)
  1. PREDNISOLONE [Suspect]
     Indication: PROSTATE CANCER METASTATIC
     Route: 048
     Dates: start: 20081210
  2. PREDNISOLONE [Suspect]
     Route: 048
     Dates: start: 20090115
  3. PREDNISOLONE [Suspect]
     Route: 048
     Dates: start: 20090305
  4. ABIRATERONE ACETATE [Suspect]
     Indication: PROSTATE CANCER METASTATIC
     Route: 048
     Dates: start: 20081210, end: 20090112
  5. ABIRATERONE ACETATE [Suspect]
     Route: 048
     Dates: start: 20090212, end: 20090218
  6. PLACEBO [Suspect]
     Indication: PROSTATE CANCER METASTATIC
     Route: 048
     Dates: start: 20081210, end: 20090112
  7. PLACEBO [Suspect]
     Route: 048
     Dates: start: 20090212
  8. CANDESARTAN CILEXETIL [Concomitant]
     Route: 048
     Dates: start: 20011001
  9. BENDROFLUMETHIAZIDE [Concomitant]
     Indication: HYPERTENSION
     Route: 048
     Dates: start: 20011001
  10. ALFUZOSIN [Concomitant]
     Indication: URINARY RETENTION
     Route: 048
     Dates: start: 20040901
  11. GOSERELIN [Concomitant]
     Indication: HORMONE THERAPY
     Route: 058
     Dates: start: 20081210
  12. GOSERELIN [Concomitant]
     Dates: start: 20040401

REACTIONS (3)
  - ALANINE AMINOTRANSFERASE INCREASED [None]
  - ASPARTATE AMINOTRANSFERASE INCREASED [None]
  - HEPATIC ENZYME INCREASED [None]
